FAERS Safety Report 21136775 (Version 14)
Quarter: 2024Q2

REPORT INFORMATION
  Report Type: Report from Study
  Country: US (occurrence: US)
  Receive Date: 20220727
  Receipt Date: 20240620
  Transmission Date: 20240715
  Serious: Yes (Other)
  Sender: FDA-Public Use
  Company Number: US-002147023-NVSC2022US168923

PATIENT
  Sex: Female

DRUGS (2)
  1. KESIMPTA [Suspect]
     Active Substance: OFATUMUMAB
     Indication: Product used for unknown indication
     Dosage: UNK UNK, QMO
     Route: 065
     Dates: start: 20220606
  2. ADDERALL [Concomitant]
     Active Substance: AMPHETAMINE ASPARTATE\AMPHETAMINE SULFATE\DEXTROAMPHETAMINE SACCHARATE\DEXTROAMPHETAMINE SULFATE
     Indication: Product used for unknown indication
     Dosage: UNK
     Route: 065
     Dates: start: 202305

REACTIONS (29)
  - B-lymphocyte count decreased [Unknown]
  - Ingrowing nail [Unknown]
  - Urinary tract infection [Unknown]
  - Petechiae [Unknown]
  - Rash [Unknown]
  - Peripheral swelling [Recovered/Resolved]
  - Influenza [Unknown]
  - Fatigue [Recovering/Resolving]
  - Pruritus [Unknown]
  - Arthralgia [Unknown]
  - Bone pain [Unknown]
  - Myalgia [Unknown]
  - Back pain [Unknown]
  - Migraine [Recovering/Resolving]
  - Gait disturbance [Unknown]
  - Influenza like illness [Unknown]
  - Nausea [Unknown]
  - Pain [Unknown]
  - Pyrexia [Unknown]
  - Chills [Unknown]
  - Limb discomfort [Unknown]
  - Feeling abnormal [Unknown]
  - Infection susceptibility increased [Unknown]
  - Skin hypertrophy [Unknown]
  - Memory impairment [Unknown]
  - Anxiety [Unknown]
  - Lipoatrophy [Unknown]
  - Product use issue [Unknown]
  - Inappropriate schedule of product administration [Unknown]

NARRATIVE: CASE EVENT DATE: 20220101
